FAERS Safety Report 18506899 (Version 6)
Quarter: 2024Q1

REPORT INFORMATION
  Report Type: Spontaneous
  Country: US (occurrence: US)
  Receive Date: 20201116
  Receipt Date: 20240327
  Transmission Date: 20240410
  Serious: No
  Sender: FDA-Public Use
  Company Number: US-PFIZER INC-2019124620

PATIENT
  Age: 71 Year
  Sex: Female
  Weight: 69.4 kg

DRUGS (4)
  1. XELJANZ XR [Suspect]
     Active Substance: TOFACITINIB CITRATE
     Indication: Arthralgia
     Dosage: 11 MG, 1X/DAY (1 TABLET ONCE A DAY FOR 90 DAYS)
     Route: 048
  2. XELJANZ XR [Suspect]
     Active Substance: TOFACITINIB CITRATE
     Indication: Back pain
     Dosage: 11 MG, DAILY
  3. XELJANZ XR [Suspect]
     Active Substance: TOFACITINIB CITRATE
     Indication: Bone pain
  4. ALENDRONATE [Concomitant]
     Active Substance: ALENDRONATE SODIUM
     Dosage: UNK

REACTIONS (4)
  - Glucose tolerance impaired [Unknown]
  - Sciatica [Unknown]
  - Pain [Unknown]
  - Neuralgia [Unknown]
